FAERS Safety Report 6508797-1 (Version None)
Quarter: 2009Q4

REPORT INFORMATION
  Report Type: 
  Country: None (occurrence: None)
  Receive Date: 20091221
  Receipt Date: 20090811
  Transmission Date: 20100525
  Serious: No
  Sender: FDA-Public Use
  Company Number: US-ASTRAZENECA-2009SE07565

PATIENT
  Age: 80 Year
  Sex: Male

DRUGS (5)
  1. CRESTOR [Suspect]
     Route: 048
     Dates: start: 20090807
  2. AVAPRO [Concomitant]
  3. GLUCOPHAGE [Concomitant]
  4. TRICOR [Concomitant]
  5. PROPRANOLOL [Concomitant]

REACTIONS (1)
  - TREMOR [None]
